FAERS Safety Report 4359219-0 (Version None)
Quarter: 2004Q2

REPORT INFORMATION
  Report Type: 
  Country: None (occurrence: None)
  Receive Date: 20040512
  Receipt Date: 20040427
  Transmission Date: 20050107
  Serious: Yes (Hospitalization)
  Sender: FDA-Public Use
  Company Number: USA040465950

PATIENT
  Age: 65 Year
  Sex: Female

DRUGS (5)
  1. GEMZAR [Suspect]
     Indication: BREAST CANCER METASTATIC
     Dosage: 1000 MG
     Dates: start: 20031027, end: 20040301
  2. KYTRIL [Concomitant]
  3. DEXAMETHASONE [Concomitant]
  4. PROCRIT (ERYTHROPOIETIN) [Concomitant]
  5. ZOMETA [Concomitant]

REACTIONS (2)
  - DIALYSIS [None]
  - GLOMERULONEPHRITIS [None]
